FAERS Safety Report 5885316-4 (Version None)
Quarter: 2008Q3

REPORT INFORMATION
  Report Type: 
  Country: None (occurrence: None)
  Receive Date: 20080916
  Receipt Date: 20080904
  Transmission Date: 20090109
  Serious: Yes (Other)
  Sender: FDA-Public Use
  Company Number: US-PFIZER INC-2008074304

PATIENT
  Sex: Male

DRUGS (1)
  1. NARDIL [Suspect]

REACTIONS (1)
  - NEOPLASM MALIGNANT [None]
